FAERS Safety Report 25913982 (Version 1)
Quarter: 2025Q4

REPORT INFORMATION
  Report Type: Spontaneous
  Country: US (occurrence: US)
  Receive Date: 20251013
  Receipt Date: 20251013
  Transmission Date: 20260117
  Serious: No
  Sender: SAMSUNG BIOEPIS
  Company Number: US-SAMSUNG BIOEPIS-SB-2025-09993

PATIENT
  Age: 25 Year
  Sex: Female

DRUGS (2)
  1. RENFLEXIS [Suspect]
     Active Substance: INFLIXIMAB-ABDA
     Indication: Takayasu^s arteritis
     Dosage: AT WEEKS 0,2,6;
     Route: 042
  2. RENFLEXIS [Suspect]
     Active Substance: INFLIXIMAB-ABDA
     Dosage: RESTARTED;
     Route: 042

REACTIONS (3)
  - Infusion related reaction [Recovered/Resolved]
  - Chest pain [Recovered/Resolved]
  - Off label use [Unknown]
